FAERS Safety Report 6631835-2 (Version None)
Quarter: 2010Q1

REPORT INFORMATION
  Report Type: 
  Country: None (occurrence: None)
  Receive Date: 20100312
  Receipt Date: 20100312
  Transmission Date: 20100710
  Serious: Yes (Life-Threatening, Hospitalization)
  Sender: FDA-Public Use
  Company Number: BR-ROCHE-589844

PATIENT
  Sex: Female
  Weight: 54 kg

DRUGS (17)
  1. BEVACIZUMAB [Suspect]
     Indication: GASTRIC CANCER
     Dosage: FREQUENCY RPTD AS: DIQ3W, FORM:INFUSION
     Route: 042
     Dates: start: 20080725, end: 20080926
  2. BEVACIZUMAB [Suspect]
     Route: 042
     Dates: end: 20081002
  3. CAPECITABINE [Suspect]
     Indication: GASTRIC CANCER
     Dosage: PROTOCOL:1000 MG/M2 TWICE DAILY FOR 14 DAYS EVERY 3 WEEKS.
     Route: 048
     Dates: start: 20080725, end: 20081002
  4. CAPECITABINE [Suspect]
     Route: 048
     Dates: start: 20081009, end: 20081104
  5. CISPLATIN [Suspect]
     Indication: GASTRIC CANCER
     Dosage: DAY 1 EVERY 3 WEEKS FOR 6 CYCLES. LAST DOSE PRIOR TO SAE ON 26 SEP 2008, FORM:INFUSION
     Route: 042
     Dates: start: 20080725, end: 20081104
  6. METOCLOPRAMIDE [Concomitant]
     Dates: start: 20081001, end: 20081001
  7. TRAMADOL HCL [Concomitant]
     Route: 048
     Dates: start: 20081001, end: 20081001
  8. AMITRIPTYLINE HCL [Concomitant]
     Dosage: DRUG NAME REPORTED AS  : AMYTARIPTINE.
     Dates: start: 20080724
  9. WARFARIN SODIUM [Concomitant]
     Dates: start: 20081010, end: 20081104
  10. WARFARIN SODIUM [Concomitant]
     Dates: start: 20081110
  11. CODEINE SUL TAB [Concomitant]
     Dates: start: 20080904, end: 20081104
  12. PARACETAMOL [Concomitant]
     Dates: start: 20080904, end: 20081104
  13. DIPIRON [Concomitant]
     Dates: start: 20081031
  14. LACTULOSE [Concomitant]
     Dates: start: 20081105
  15. ENOXAPARIN SODIUM [Concomitant]
     Dates: start: 20081106, end: 20081117
  16. ALPROSTADIL [Concomitant]
     Dates: start: 20081105, end: 20081117
  17. MORPHINE [Concomitant]
     Dosage: NAME RPTD AS MORFINE
     Dates: start: 20081105

REACTIONS (1)
  - PERIPHERAL ISCHAEMIA [None]
